FAERS Safety Report 23565219 (Version 1)
Quarter: 2024Q1

REPORT INFORMATION
  Report Type: Spontaneous
  Country: DE (occurrence: DE)
  Receive Date: 20240226
  Receipt Date: 20240226
  Transmission Date: 20240410
  Serious: Yes (Hospitalization, Other)
  Sender: FDA-Public Use
  Company Number: DE-BAYER-2024A028865

PATIENT
  Sex: Male

DRUGS (1)
  1. ULTRAVIST [Suspect]
     Active Substance: IOPROMIDE
     Dosage: 100 ML, ONCE
     Route: 042
     Dates: start: 20231107, end: 20231107

REACTIONS (3)
  - Fall [Recovering/Resolving]
  - Loss of consciousness [Recovering/Resolving]
  - Unresponsive to stimuli [Recovering/Resolving]
